FAERS Safety Report 4507057-8 (Version None)
Quarter: 2004Q4

REPORT INFORMATION
  Report Type: 
  Country: None (occurrence: None)
  Receive Date: 20041122
  Receipt Date: 20030605
  Transmission Date: 20050328
  Serious: Yes (Hospitalization, Disabling)
  Sender: FDA-Public Use
  Company Number: US-MERCK-0306USA00855

PATIENT
  Sex: Male

DRUGS (6)
  1. VIOXX [Suspect]
     Route: 048
  2. NORVASC [Concomitant]
     Route: 048
     Dates: end: 19990921
  3. NORVASC [Concomitant]
     Route: 048
     Dates: start: 19990922
  4. CLONIDINE [Concomitant]
     Route: 048
  5. ZANTAC [Concomitant]
     Route: 048
  6. PREVACID [Concomitant]
     Route: 065

REACTIONS (25)
  - ADENOIDAL DISORDER [None]
  - ADVERSE EVENT [None]
  - ASPARTATE AMINOTRANSFERASE INCREASED [None]
  - BLOOD POTASSIUM DECREASED [None]
  - CALCULUS URINARY [None]
  - CONTUSION [None]
  - DIARRHOEA [None]
  - HAEMATOCHEZIA [None]
  - HEADACHE [None]
  - HYDROCELE [None]
  - HYPERCALCAEMIA [None]
  - INGUINAL HERNIA [None]
  - LIPOMA [None]
  - MACROGLOSSIA [None]
  - OBSTRUCTION [None]
  - POLYTRAUMATISM [None]
  - SLEEP APNOEA SYNDROME [None]
  - TENDON RUPTURE [None]
  - TESTICULAR PAIN [None]
  - TONSILLAR HYPERTROPHY [None]
  - UMBILICAL HERNIA [None]
  - URINE SODIUM INCREASED [None]
  - VARICOCELE [None]
  - VENTRICULAR EXTRASYSTOLES [None]
  - WEIGHT INCREASED [None]
